FAERS Safety Report 5816217-5 (Version None)
Quarter: 2008Q3

REPORT INFORMATION
  Report Type: 
  Country: None (occurrence: None)
  Receive Date: 20080721
  Receipt Date: 20080714
  Transmission Date: 20090109
  Serious: Yes (Other)
  Sender: FDA-Public Use
  Company Number: B0529660A

PATIENT

DRUGS (1)
  1. CEFUROXIME [Suspect]
     Indication: EYE INFECTION
     Route: 047
     Dates: start: 20080709, end: 20080709

REACTIONS (4)
  - CORNEAL OPACITY [None]
  - INCORRECT ROUTE OF DRUG ADMINISTRATION [None]
  - OFF LABEL USE [None]
  - PHARMACEUTICAL PRODUCT COMPLAINT [None]
